FAERS Safety Report 8326497-2 (Version None)
Quarter: 2012Q2

REPORT INFORMATION
  Report Type: 
  Country: None (occurrence: None)
  Receive Date: 20120501
  Receipt Date: 20110525
  Transmission Date: 20120825
  Serious: No
  Sender: FDA-Public Use
  Company Number: US-SANOFI-AVENTIS-2011SA035918

PATIENT
  Sex: Female
  Weight: 52 kg

DRUGS (28)
  1. CALCIUM [Concomitant]
  2. ATORVASTATIN CALCIUM [Concomitant]
  3. METHOCARBAMOL [Concomitant]
  4. MONOPRIL [Concomitant]
     Dosage: DOSAGE AS REPORTED IS 20/12.5
  5. ARAVA [Concomitant]
  6. OTHER OPHTHALMOLOGICALS [Concomitant]
  7. APIDRA [Suspect]
     Dosage: FERQUENCY AS REPORTED IS 75 UNITS PLUS 1-3.
     Route: 058
     Dates: start: 20100101, end: 20110501
  8. METHOTREXATE [Concomitant]
     Dosage: FORM AS REPORTED IS INFUSION
  9. GABAPENTIN [Concomitant]
  10. FOLIC ACID [Concomitant]
  11. MILNACIPRAN [Concomitant]
  12. PANCREASE [Concomitant]
  13. ZOLEDRONIC [Concomitant]
     Dosage: FREQUENCY 1X YR
  14. APIDRA [Suspect]
     Dosage: FERQUENCY AS REPORTED IS 75 UNITS PLUS 1-3.
     Route: 058
     Dates: start: 20100101, end: 20110501
  15. CODEINE [Concomitant]
     Indication: HEADACHE
  16. ASPIRIN [Concomitant]
  17. XANAX [Concomitant]
  18. VITAMIN C [Concomitant]
     Dosage: DOSE:1000 UNIT(S)
  19. FLEXERIL [Concomitant]
  20. CARISOPRODOL [Concomitant]
  21. LUTEIN [Concomitant]
  22. PREDNISONE [Concomitant]
  23. PRILOSEC [Concomitant]
  24. VITAMIN D [Concomitant]
     Dosage: DOSE:2000 UNIT(S)
  25. WELCHOL [Concomitant]
     Dosage: DOSAGE AS REPORTED IS 6 PILLS
  26. HYDROMORPHONE HCL [Concomitant]
     Dosage: FREQUENCY AS REPORTED IS 2-3/DAY
  27. ALL OTHER THERAPEUTIC PRODUCTS [Concomitant]
  28. MULTI-VITAMINS [Concomitant]

REACTIONS (2)
  - BODY TEMPERATURE INCREASED [None]
  - BLOOD GLUCOSE INCREASED [None]
